FAERS Safety Report 16980286 (Version 3)
Quarter: 2019Q4

REPORT INFORMATION
  Report Type: Report from Study
  Country: DO (occurrence: DO)
  Receive Date: 20191031
  Receipt Date: 20191206
  Transmission Date: 20200122
  Serious: Yes (Other)
  Sender: FDA-Public Use
  Company Number: NVSC2019DO019101

PATIENT
  Age: 33 Year
  Sex: Female

DRUGS (1)
  1. GILENYA [Suspect]
     Active Substance: FINGOLIMOD HYDROCHLORIDE
     Indication: PRODUCT USED FOR UNKNOWN INDICATION
     Dosage: 0.5 MG
     Route: 065

REACTIONS (12)
  - Influenza [Unknown]
  - Disease progression [Unknown]
  - Dyspnoea [Recovering/Resolving]
  - Paralysis [Unknown]
  - Headache [Unknown]
  - Pyrexia [Unknown]
  - Pain [Unknown]
  - Eye irritation [Unknown]
  - Vertigo [Unknown]
  - Influenza like illness [Unknown]
  - Dysgeusia [Unknown]
  - Eye movement disorder [Recovering/Resolving]
